FAERS Safety Report 7997615-0 (Version None)
Quarter: 2011Q4

REPORT INFORMATION
  Report Type: 
  Country: None (occurrence: None)
  Receive Date: 20111221
  Receipt Date: 20111215
  Transmission Date: 20120403
  Serious: Yes (Other)
  Sender: FDA-Public Use
  Company Number: US-JNJFOC-20111207245

PATIENT
  Age: 77 Year
  Sex: Male
  Weight: 117.94 kg

DRUGS (8)
  1. RAZADYNE [Suspect]
     Indication: DEMENTIA
     Route: 048
     Dates: start: 20111021, end: 20111031
  2. INSULIN [Concomitant]
     Indication: DIABETES MELLITUS
     Route: 065
  3. UNKNOWN MEDICATION [Concomitant]
     Indication: NUTRITIONAL SUPPORT
     Route: 048
  4. PANTOPRAZOLE [Concomitant]
     Indication: PRODUCT USED FOR UNKNOWN INDICATION
     Route: 048
  5. GABAPENTIN [Concomitant]
     Indication: PRODUCT USED FOR UNKNOWN INDICATION
     Route: 048
  6. NPH INSULIN [Concomitant]
     Indication: DIABETES MELLITUS
     Route: 065
  7. MIDODRINE HYDROCHLORIDE [Concomitant]
     Indication: PRODUCT USED FOR UNKNOWN INDICATION
     Route: 065
  8. PRAVASTATIN [Concomitant]
     Indication: PRODUCT USED FOR UNKNOWN INDICATION
     Route: 065

REACTIONS (2)
  - TREMOR [None]
  - DYSKINESIA [None]
